FAERS Safety Report 10593381 (Version 1)
Quarter: 2014Q4

REPORT INFORMATION
  Report Type: Spontaneous
  Country: AU (occurrence: AU)
  Receive Date: 20141119
  Receipt Date: 20141119
  Transmission Date: 20150529
  Serious: Yes (Other)
  Sender: FDA-Public Use
  Company Number: AU-ACTAVIS PTY LTD-2014-24657

PATIENT
  Sex: Male

DRUGS (1)
  1. QUITX GUM [Suspect]
     Active Substance: NICOTINE
     Indication: EX-TOBACCO USER
     Dosage: 21 MG PATCHES
     Route: 048

REACTIONS (2)
  - Incorrect route of drug administration [Unknown]
  - Burning sensation [Not Recovered/Not Resolved]
